FAERS Safety Report 4589797-8 (Version None)
Quarter: 2005Q1

REPORT INFORMATION
  Report Type: 
  Country: None (occurrence: None)
  Receive Date: 20050223
  Receipt Date: 20041209
  Transmission Date: 20050727
  Serious: Yes (Hospitalization)
  Sender: FDA-Public Use
  Company Number: FR-GLAXOSMITHKLINE-B0361722A

PATIENT
  Age: 50 Year
  Sex: Male
  Weight: 56 kg

DRUGS (9)
  1. ZIAGEN [Suspect]
     Indication: HIV INFECTION
     Route: 048
     Dates: start: 20040806, end: 20041013
  2. EPIVIR [Suspect]
     Indication: HIV INFECTION
     Route: 048
     Dates: start: 20040806, end: 20041013
  3. NORVIR [Suspect]
     Indication: HIV INFECTION
     Route: 048
     Dates: start: 20040806, end: 20041013
  4. ATAZANAVIR [Suspect]
     Indication: HIV INFECTION
     Route: 048
     Dates: start: 20040806, end: 20041013
  5. AZADOSE [Concomitant]
     Dosage: 3TABS PER DAY
     Route: 048
  6. BACTRIM DS [Concomitant]
     Dosage: 2TABS PER DAY
     Route: 048
  7. AUGMENTIN '125' [Concomitant]
     Dosage: 3UNIT PER DAY
     Route: 065
  8. OMEPRAZOLE [Concomitant]
     Dosage: 1UNIT PER DAY
     Route: 065
  9. TRIFLUCAN [Concomitant]
     Dosage: 1UNIT PER DAY
     Route: 065

REACTIONS (7)
  - BLOOD FIBRINOGEN DECREASED [None]
  - DISSEMINATED INTRAVASCULAR COAGULATION [None]
  - HEADACHE [None]
  - HEPATITIS ACUTE [None]
  - PYREXIA [None]
  - VOMITING [None]
  - WEIGHT DECREASED [None]
